FAERS Safety Report 13087962 (Version 3)
Quarter: 2017Q2

REPORT INFORMATION
  Report Type: Spontaneous
  Country: US (occurrence: US)
  Receive Date: 20170105
  Receipt Date: 20170403
  Transmission Date: 20170830
  Serious: Yes (Other)
  Sender: FDA-Public Use
  Company Number: US-PFIZER INC-2017002362

PATIENT
  Age: 65 Year
  Sex: Male

DRUGS (4)
  1. LOPID [Suspect]
     Active Substance: GEMFIBROZIL
     Dosage: 600 MG, 2X/DAY (MORNING AND EVENING MEAL)
     Route: 048
     Dates: start: 2012
  2. RAPAMUNE [Suspect]
     Active Substance: SIROLIMUS
     Indication: PROPHYLAXIS AGAINST TRANSPLANT REJECTION
     Dosage: 2 MG, 1X/DAY
     Route: 048
     Dates: start: 2005
  3. LIPITOR [Suspect]
     Active Substance: ATORVASTATIN CALCIUM
     Dosage: 40 MG, DAILY
     Route: 048
     Dates: start: 2011
  4. ZOLOFT [Suspect]
     Active Substance: SERTRALINE HYDROCHLORIDE
     Dosage: 100 MG, DAILY
     Dates: start: 2004

REACTIONS (5)
  - Lipids increased [Unknown]
  - Product use in unapproved indication [Unknown]
  - Condition aggravated [Unknown]
  - Diabetes mellitus inadequate control [Unknown]
  - Renal failure [Unknown]
